FAERS Safety Report 9624298 (Version 1)
Quarter: 2013Q4

REPORT INFORMATION
  Report Type: Spontaneous
  Country: US (occurrence: US)
  Receive Date: 20131015
  Receipt Date: 20131015
  Transmission Date: 20140711
  Serious: Yes (Hospitalization, Other)
  Sender: FDA-Public Use
  Company Number: US-ELI_LILLY_AND_COMPANY-US201310001638

PATIENT
  Sex: Female

DRUGS (11)
  1. HUMALOG LISPRO [Suspect]
     Indication: DIABETES MELLITUS
     Dosage: UNK
     Dates: start: 1998
  2. HUMALOG LISPRO [Suspect]
     Dosage: 6 U, TID
  3. INSULIN [Concomitant]
  4. LEVOTHYROXINE SODIUM [Concomitant]
  5. ZOLPIDEM TARTRATE [Concomitant]
  6. MELATONIN [Concomitant]
     Dosage: 3 MG, UNK
  7. OMEPRAZOLE [Concomitant]
  8. XANAX [Concomitant]
  9. AMLODIPINE BESILATE [Concomitant]
  10. TRAMADOL [Concomitant]
  11. ENALAPRIL MALEATE [Concomitant]

REACTIONS (8)
  - Cerebrovascular accident [Unknown]
  - Cerebrovascular accident [Unknown]
  - Colon cancer [Recovered/Resolved]
  - Lung neoplasm malignant [Unknown]
  - Blindness [Not Recovered/Not Resolved]
  - Anaemia [Unknown]
  - Amnesia [Unknown]
  - Tremor [Unknown]
